FAERS Safety Report 7946204-2 (Version None)
Quarter: 2011Q4

REPORT INFORMATION
  Report Type: 
  Country: None (occurrence: None)
  Receive Date: 20111129
  Receipt Date: 20111116
  Transmission Date: 20120403
  Serious: Yes (Hospitalization)
  Sender: FDA-Public Use
  Company Number: IT-JNJFOC-20110901217

PATIENT
  Sex: Male
  Weight: 54 kg

DRUGS (3)
  1. PREDNISONE [Suspect]
     Indication: PROSTATE CANCER METASTATIC
     Route: 048
     Dates: start: 20110624, end: 20110829
  2. ABIRATERONE ACETATE [Suspect]
     Indication: PROSTATE CANCER METASTATIC
     Route: 048
     Dates: start: 20110919
  3. ABIRATERONE ACETATE [Suspect]
     Route: 048
     Dates: start: 20110624, end: 20110829

REACTIONS (6)
  - RENAL FAILURE [None]
  - ANAEMIA [None]
  - PULMONARY EMBOLISM [None]
  - VENOUS THROMBOSIS [None]
  - DIARRHOEA [None]
  - DYSPNOEA [None]
